FAERS Safety Report 18354579 (Version 1)
Quarter: 2020Q4

REPORT INFORMATION
  Report Type: Spontaneous
  Country: US (occurrence: US)
  Receive Date: 20201007
  Receipt Date: 20201007
  Transmission Date: 20210114
  Serious: No
  Sender: FDA-Public Use
  Company Number: US-BION-008247

PATIENT
  Sex: Female

DRUGS (1)
  1. PROGESTERONE CAPSULES 200 MG [Suspect]
     Active Substance: PROGESTERONE
     Indication: PRODUCT USED FOR UNKNOWN INDICATION
     Dosage: STRENGTH: 200 MG
     Route: 067

REACTIONS (1)
  - Product use issue [Not Recovered/Not Resolved]
